FAERS Safety Report 8815318 (Version 2)
Quarter: 2013Q1

REPORT INFORMATION
  Report Type: Spontaneous
  Country: FI (occurrence: FI)
  Receive Date: 20120928
  Receipt Date: 20130329
  Transmission Date: 20140127
  Serious: Yes (Death, Hospitalization)
  Sender: FDA-Public Use
  Company Number: FI-JNJFOC-20120909709

PATIENT
  Age: 19 Year
  Sex: Male

DRUGS (1)
  1. CONCERTA [Suspect]
     Indication: ATTENTION DEFICIT/HYPERACTIVITY DISORDER
     Route: 048

REACTIONS (9)
  - Overdose [Fatal]
  - Drug abuse [Fatal]
  - Suicide attempt [Unknown]
  - Self injurious behaviour [Unknown]
  - Withdrawal syndrome [Unknown]
  - Drug dependence [Unknown]
  - General physical condition abnormal [Unknown]
  - Compulsions [Unknown]
  - Contraindication to medical treatment [Recovered/Resolved]
